FAERS Safety Report 5005129-5 (Version None)
Quarter: 2006Q2

REPORT INFORMATION
  Report Type: 
  Country: None (occurrence: None)
  Receive Date: 20060518
  Receipt Date: 20060509
  Transmission Date: 20061013
  Serious: Yes (Hospitalization)
  Sender: FDA-Public Use
  Company Number: PHRM2006FR01515

PATIENT
  Age: 68 Year
  Sex: Female

DRUGS (6)
  1. MODOPAR [Suspect]
     Indication: PARKINSON'S DISEASE
     Dosage: 1 G DAILY
     Route: 048
     Dates: end: 20060209
  2. MODOPAR [Suspect]
     Dosage: PROGRESSIVELY DECREASE
     Route: 048
     Dates: start: 20060210, end: 20060215
  3. MODOPAR [Suspect]
     Dosage: 562.5 MG PER DAY
     Route: 048
     Dates: start: 20060216
  4. TRIVASTAL [Suspect]
     Indication: PARKINSON'S DISEASE
     Route: 048
     Dates: end: 20060218
  5. DEPRENYL [Suspect]
     Indication: PARKINSON'S DISEASE
     Dosage: 5 MG DAILY
     Route: 048
     Dates: end: 20060209
  6. COMTAN [Suspect]
     Indication: PARKINSON'S DISEASE
     Dosage: 200 MG, QID
     Route: 048
     Dates: end: 20060209

REACTIONS (4)
  - AKINESIA [None]
  - EXTRAPYRAMIDAL DISORDER [None]
  - HALLUCINATION, VISUAL [None]
  - IMPAIRED SELF-CARE [None]
